FAERS Safety Report 5265552-0 (Version None)
Quarter: 2007Q1

REPORT INFORMATION
  Report Type: 
  Country: None (occurrence: None)
  Receive Date: 20070314
  Receipt Date: 20070302
  Transmission Date: 20070707
  Serious: Yes (Hospitalization, Other)
  Sender: FDA-Public Use
  Company Number: CH-PFIZER INC-2006156129

PATIENT
  Age: 38 Year
  Sex: Female

DRUGS (3)
  1. ZYRTEC [Suspect]
     Indication: URTICARIA
     Route: 048
  2. LORAZEPAM [Suspect]
     Indication: DEPRESSION
  3. FLUCTINE [Suspect]
     Indication: DEPRESSION
     Route: 048

REACTIONS (3)
  - ABORTION INDUCED [None]
  - DRUG EXPOSURE DURING PREGNANCY [None]
  - OLIGOHYDRAMNIOS [None]
